FAERS Safety Report 15406493 (Version 1)
Quarter: 2018Q3

REPORT INFORMATION
  Report Type: Spontaneous
  Country: LB (occurrence: LB)
  Receive Date: 20180920
  Receipt Date: 20180920
  Transmission Date: 20181010
  Serious: Yes (Other)
  Sender: FDA-Public Use
  Company Number: LB-JAZZ-2018-LB-013677

PATIENT
  Age: 27 Year
  Sex: Female

DRUGS (8)
  1. RITUXIMAB. [Suspect]
     Active Substance: RITUXIMAB
     Indication: B-CELL TYPE ACUTE LEUKAEMIA
     Dosage: 375 MG/M2 ON DAY 1 AND DAY15
     Dates: start: 20180131
  2. VINCRISTINE [Suspect]
     Active Substance: VINCRISTINE
     Indication: B-CELL TYPE ACUTE LEUKAEMIA
     Dosage: 1 MG ON DAY 1,8,AND 15
     Dates: start: 20180131
  3. VENETOCLAX. [Suspect]
     Active Substance: VENETOCLAX
     Indication: B-CELL TYPE ACUTE LEUKAEMIA
     Dosage: RAMP?UP WITH 20 MG/DAY TO 400 MG DAILY (INITIALLY NO AZOLE BUT LATER VENETOCLAX DOSE DECREAED TO100
     Dates: start: 2018
  4. VORICONAZOLE. [Suspect]
     Active Substance: VORICONAZOLE
     Indication: B-CELL TYPE ACUTE LEUKAEMIA
     Dosage: UNK
     Dates: start: 2018
  5. ASPARAGINASE [Suspect]
     Active Substance: ASPARAGINASE
     Indication: B-CELL TYPE ACUTE LEUKAEMIA
     Dosage: 6000 UNITS/M2 ON DAY 2 AND DAY 16
     Dates: start: 20180131
  6. METHOTREXATE. [Suspect]
     Active Substance: METHOTREXATE
     Indication: B-CELL TYPE ACUTE LEUKAEMIA
     Dosage: 100 MG/M2 ON DAYS 1 AND 15
     Dates: start: 20180131
  7. CYTARABINE. [Suspect]
     Active Substance: CYTARABINE
     Indication: B-CELL TYPE ACUTE LEUKAEMIA
     Dosage: 100 MG ON DAY 8
     Route: 037
     Dates: start: 2018
  8. DEXAMETHASONE. [Suspect]
     Active Substance: DEXAMETHASONE
     Indication: B-CELL TYPE ACUTE LEUKAEMIA
     Dosage: 20 MG DAILY FOR 4 DAYS STARTING ON DAYS 1 AND 15
     Dates: start: 20180131

REACTIONS (3)
  - Neutropenia [Recovering/Resolving]
  - Thrombocytopenia [Recovering/Resolving]
  - Anaemia [Recovering/Resolving]
